FAERS Safety Report 11740436 (Version 2)
Quarter: 2015Q4

REPORT INFORMATION
  Report Type: Spontaneous
  Country: US (occurrence: US)
  Receive Date: 20151110
  Receipt Date: 20151120
  Transmission Date: 20160304
  Serious: No
  Sender: FDA-Public Use
  Company Number: US-ELI_LILLY_AND_COMPANY-US201205008144

PATIENT
  Age: 79 Year
  Sex: Female

DRUGS (3)
  1. FORTEO [Suspect]
     Active Substance: TERIPARATIDE
     Indication: OSTEOPOROSIS
     Dosage: 20 UG, QD
     Route: 065
     Dates: start: 20120519
  2. FORTEO [Suspect]
     Active Substance: TERIPARATIDE
     Dosage: 20 UG, QD
     Route: 065
     Dates: start: 201302
  3. FORTEO [Suspect]
     Active Substance: TERIPARATIDE
     Dosage: 20 UG, QD
     Route: 065
     Dates: end: 20121219

REACTIONS (18)
  - Hypertension [Not Recovered/Not Resolved]
  - Dizziness [Unknown]
  - Bladder disorder [Unknown]
  - Palpitations [Recovered/Resolved]
  - Vitamin D decreased [Unknown]
  - Dysgeusia [Unknown]
  - Mobility decreased [Not Recovered/Not Resolved]
  - Renal disorder [Unknown]
  - Bone pain [Not Recovered/Not Resolved]
  - Diabetes mellitus [Unknown]
  - Discomfort [Unknown]
  - Neuropathy peripheral [Unknown]
  - Vulvovaginal burning sensation [Not Recovered/Not Resolved]
  - Cystitis [Not Recovered/Not Resolved]
  - Peripheral swelling [Not Recovered/Not Resolved]
  - Back disorder [Unknown]
  - Nausea [Unknown]
  - Sleep disorder due to a general medical condition [Unknown]

NARRATIVE: CASE EVENT DATE: 20120519
